FAERS Safety Report 22103272 (Version 1)
Quarter: 2023Q1

REPORT INFORMATION
  Report Type: Spontaneous
  Country: AU (occurrence: None)
  Receive Date: 20230316
  Receipt Date: 20230316
  Transmission Date: 20230418
  Serious: Yes (Hospitalization)
  Sender: FDA-Public Use
  Company Number: AU-ROCHE-3229624

PATIENT
  Age: 15 Year
  Sex: Male

DRUGS (1)
  1. HEMLIBRA [Suspect]
     Active Substance: EMICIZUMAB-KXWH
     Indication: Haemorrhage prophylaxis
     Route: 065

REACTIONS (3)
  - Fall [Unknown]
  - Headache [Unknown]
  - Skin abrasion [Unknown]

NARRATIVE: CASE EVENT DATE: 20221002
